FAERS Safety Report 8811631 (Version 1)
Quarter: 2012Q4

REPORT INFORMATION
  Report Type: 
  Country: US (occurrence: None)
  Receive Date: 20120925
  Receipt Date: 20120925
  Transmission Date: 20130627
  Serious: No
  Sender: FDA-Public Use
  Company Number: None

PATIENT
  Sex: Female
  Weight: 70.4 kg

DRUGS (7)
  1. CYCLOPHOSPHAMIDE [Suspect]
  2. DAUNORUBICIN [Suspect]
  3. DEXAMETHASONE [Suspect]
  4. DOXORUBICIN HYDROCHLORIDE [Suspect]
  5. MERCAPTOPURINE [Suspect]
  6. METHOTREXATE [Suspect]
  7. VINCRISTINE SULFATE [Suspect]

REACTIONS (9)
  - Acute myeloid leukaemia [None]
  - Bone marrow transplant [None]
  - Febrile neutropenia [None]
  - Cough [None]
  - Bronchiectasis [None]
  - Respiratory distress [None]
  - Haemoptysis [None]
  - Lung infiltration [None]
  - Respiratory failure [None]
